FAERS Safety Report 6641988-8 (Version None)
Quarter: 2010Q1

REPORT INFORMATION
  Report Type: 
  Country: None (occurrence: None)
  Receive Date: 20100316
  Receipt Date: 20100308
  Transmission Date: 20100710
  Serious: Yes (Other)
  Sender: FDA-Public Use
  Company Number: CRC-10-041

PATIENT
  Sex: Female

DRUGS (6)
  1. ONDANSETRON HCL [Suspect]
     Indication: MIGRAINE
     Dosage: 4MG TID PRN
     Dates: start: 20100201
  2. ONDANSETRON HCL [Suspect]
     Indication: NAUSEA
     Dosage: 4MG TID PRN
     Dates: start: 20100201
  3. ONDANSETRON HCL [Suspect]
  4. PERCOCET [Concomitant]
  5. SOMA [Concomitant]
  6. IMITREX [Concomitant]

REACTIONS (4)
  - DEHYDRATION [None]
  - PRODUCT SUBSTITUTION ISSUE [None]
  - PRODUCT TASTE ABNORMAL [None]
  - VOMITING [None]
